FAERS Safety Report 8052262-X (Version None)
Quarter: 2012Q1

REPORT INFORMATION
  Report Type: 
  Country: None (occurrence: None)
  Receive Date: 20120118
  Receipt Date: 20120112
  Transmission Date: 20120608
  Serious: Yes (Other)
  Sender: FDA-Public Use
  Company Number: DK-JNJFOC-20110303687

PATIENT
  Sex: Female
  Weight: 20 kg

DRUGS (7)
  1. CONCERTA [Suspect]
     Route: 048
     Dates: start: 20090301
  2. RITALIN [Suspect]
     Indication: ATTENTION DEFICIT/HYPERACTIVITY DISORDER
     Dosage: WITH A START DOSE OF 10 MG+5 MG+5MG DAILY DOSE
     Route: 048
     Dates: start: 20090501, end: 20090715
  3. METHYLPHENIDATE [Suspect]
     Indication: ATTENTION DEFICIT/HYPERACTIVITY DISORDER
     Route: 048
     Dates: start: 20081001, end: 20090715
  4. METHYLPHENIDATE [Suspect]
     Route: 048
     Dates: start: 20090715, end: 20090901
  5. METHYLPHENIDATE [Suspect]
     Route: 048
     Dates: end: 20100406
  6. CONCERTA [Suspect]
     Indication: ATTENTION DEFICIT/HYPERACTIVITY DISORDER
     Route: 048
     Dates: end: 20100401
  7. CONCERTA [Suspect]
     Route: 048
     Dates: start: 20090716, end: 20090901

REACTIONS (2)
  - WEIGHT GAIN POOR [None]
  - GROWTH RETARDATION [None]
